FAERS Safety Report 9966813 (Version 2)
Quarter: 2014Q1

REPORT INFORMATION
  Report Type: Report from Study
  Country: US (occurrence: US)
  Receive Date: 20140305
  Receipt Date: 20140305
  Transmission Date: 20141002
  Serious: Yes (Other)
  Sender: FDA-Public Use
  Company Number: US-ABBVIE-13P-163-1067232-00

PATIENT
  Age: 45 Year
  Sex: Female
  Weight: 93.52 kg

DRUGS (6)
  1. HUMIRA [Suspect]
     Indication: CROHN^S DISEASE
     Dates: start: 201205
  2. DEPAKOTE [Concomitant]
     Indication: BIPOLAR DISORDER
     Dosage: 2 AT BEDTIME
  3. ATIVAN [Concomitant]
     Indication: ANXIETY
  4. PROZAC [Concomitant]
     Indication: DEPRESSION
     Dosage: 50 MG DAILY
  5. ABILIFY [Concomitant]
     Indication: DEPRESSION
     Dosage: 30 MG DAILY
  6. IMURAN [Concomitant]
     Indication: CROHN^S DISEASE
     Dosage: 4 DAILY

REACTIONS (1)
  - Cholelithiasis [Recovered/Resolved]
